FAERS Safety Report 17208918 (Version 1)
Quarter: 2019Q4

REPORT INFORMATION
  Report Type: Spontaneous
  Country: US (occurrence: US)
  Receive Date: 20191227
  Receipt Date: 20191227
  Transmission Date: 20200122
  Serious: No
  Sender: FDA-Public Use
  Company Number: US-BIOGEN-2019BI00719517

PATIENT
  Sex: Female

DRUGS (8)
  1. MYRBETRIQ [Concomitant]
     Active Substance: MIRABEGRON
     Route: 048
  2. AVONEX PEN [Suspect]
     Active Substance: INTERFERON BETA-1A
  3. AVONEX PEN [Suspect]
     Active Substance: INTERFERON BETA-1A
     Indication: MULTIPLE SCLEROSIS
     Route: 030
     Dates: start: 201704, end: 20191122
  4. NEXPLANON [Concomitant]
     Active Substance: ETONOGESTREL
     Route: 065
  5. AVONEX PEN [Suspect]
     Active Substance: INTERFERON BETA-1A
  6. AVONEX PEN [Suspect]
     Active Substance: INTERFERON BETA-1A
  7. IBUPROFEN. [Concomitant]
     Active Substance: IBUPROFEN
     Route: 048
  8. VITAMIN D3 [Concomitant]
     Active Substance: CHOLECALCIFEROL
     Route: 048

REACTIONS (13)
  - Back pain [Unknown]
  - Injection related reaction [Unknown]
  - Depressed mood [Unknown]
  - Pyrexia [Unknown]
  - Malaise [Unknown]
  - Liver function test increased [Not Recovered/Not Resolved]
  - Headache [Unknown]
  - Anxiety [Unknown]
  - Fatigue [Unknown]
  - Hemiparesis [Unknown]
  - Nervousness [Unknown]
  - Vision blurred [Unknown]
  - Chills [Unknown]
